FAERS Safety Report 4490384-0 (Version None)
Quarter: 2004Q3

REPORT INFORMATION
  Report Type: 
  Country: None (occurrence: None)
  Receive Date: 20040921
  Receipt Date: 20031111
  Transmission Date: 20050211
  Serious: No
  Sender: FDA-Public Use
  Company Number: 163-20785-03110297

PATIENT
  Age: 70 Year
  Sex: Female

DRUGS (6)
  1. THALOMID [Suspect]
     Indication: NON-SMALL CELL LUNG CANCER
     Dosage: 50 MG, QHS, ORAL
     Route: 048
     Dates: start: 20030829
  2. NAVELBINE [Suspect]
     Indication: NON-SMALL CELL LUNG CANCER
     Dosage: 5 MG/M2, Q M,W,F, ORAL
     Route: 048
     Dates: start: 20030829
  3. NA CHLORIDE (SODIUM CHLORIDE) [Concomitant]
  4. TYLENOL ES (PARACETAMOL) [Concomitant]
  5. BENADRYL [Concomitant]
  6. ACETYLSALICYLIC ACID SRT [Concomitant]

REACTIONS (5)
  - DISEASE PROGRESSION [None]
  - EYE PAIN [None]
  - GLAUCOMA [None]
  - INTRAOCULAR PRESSURE INCREASED [None]
  - VISUAL ACUITY REDUCED [None]
